FAERS Safety Report 22800871 (Version 3)
Quarter: 2023Q4

REPORT INFORMATION
  Report Type: Spontaneous
  Country: US (occurrence: US)
  Receive Date: 20230808
  Receipt Date: 20231009
  Transmission Date: 20240110
  Serious: Yes (Death, Hospitalization, Other)
  Sender: FDA-Public Use
  Company Number: US-GLAXOSMITHKLINE-US2023105168

PATIENT

DRUGS (1)
  1. BREO ELLIPTA [Suspect]
     Active Substance: FLUTICASONE FUROATE\VILANTEROL TRIFENATATE
     Indication: Chronic obstructive pulmonary disease
     Dosage: 1 PUFF(S), QD (BREO 100 USE 1 INHALATION BY MOUTH EVERY DAY)
     Route: 048
     Dates: start: 2018, end: 20230509

REACTIONS (2)
  - Cardiac failure [Fatal]
  - Aortic stenosis [Fatal]

NARRATIVE: CASE EVENT DATE: 20230509
